FAERS Safety Report 4412916-0 (Version None)
Quarter: 2004Q3

REPORT INFORMATION
  Report Type: 
  Country: None (occurrence: None)
  Receive Date: 20040727
  Receipt Date: 20040708
  Transmission Date: 20050211
  Serious: Yes (Other)
  Sender: FDA-Public Use
  Company Number: DSA_24659_2004

PATIENT
  Age: 71 Year
  Sex: Female

DRUGS (2)
  1. NIFEDIPINE [Suspect]
     Indication: HYPERTENSION
     Dosage: 90 MG BID PO
     Route: 048
     Dates: start: 20040701, end: 20040701
  2. NIFEDIPINE [Suspect]
     Dosage: 60 MG BID PO
     Route: 048
     Dates: end: 20040701

REACTIONS (1)
  - BLOOD PRESSURE INCREASED [None]
